FAERS Safety Report 22300149 (Version 1)
Quarter: 2023Q2

REPORT INFORMATION
  Report Type: Spontaneous
  Country: US (occurrence: None)
  Receive Date: 20230508
  Receipt Date: 20230508
  Transmission Date: 20230721
  Serious: Yes (Other)
  Sender: FDA-Public Use
  Company Number: None

PATIENT
  Sex: Female

DRUGS (1)
  1. XELODA [Suspect]
     Active Substance: CAPECITABINE
     Dosage: FREQUENCY : TWICE A DAY;?
     Route: 048

REACTIONS (11)
  - Fall [None]
  - Salivary hypersecretion [None]
  - Nausea [None]
  - Anosmia [None]
  - Off label use [None]
  - Neuropathy peripheral [None]
  - Somnolence [None]
  - Abdominal pain upper [None]
  - Skin discolouration [None]
  - Constipation [None]
  - Brain fog [None]
